FAERS Safety Report 8236915 (Version 5)
Quarter: 2013Q2

REPORT INFORMATION
  Report Type: Report from Study
  Country: JP (occurrence: JP)
  Receive Date: 20111109
  Receipt Date: 20130620
  Transmission Date: 20140414
  Serious: Yes (Hospitalization)
  Sender: FDA-Public Use
  Company Number: JP-ELI_LILLY_AND_COMPANY-JP201108004711

PATIENT
  Age: 75 Year
  Sex: Female

DRUGS (11)
  1. TERIPARATIDE [Suspect]
     Indication: OSTEOPOROSIS
     Dosage: UNK, QD
     Route: 058
     Dates: start: 20110720
  2. TERIPARATIDE [Suspect]
     Dosage: UNK UNK, QD
     Route: 058
     Dates: start: 20111017
  3. TERIPARATIDE [Suspect]
     Dosage: UNK
     Route: 058
     Dates: start: 20130614
  4. TOCILIZUMAB [Concomitant]
     Indication: RHEUMATIC DISORDER
     Dosage: UNK, WEEKLY (1/W)
     Route: 042
  5. REMICADE [Concomitant]
     Indication: RHEUMATIC DISORDER
  6. RHEUMATREX [Concomitant]
     Indication: RHEUMATIC DISORDER
  7. PREDONINE [Concomitant]
     Indication: RHEUMATIC DISORDER
  8. PROGRAF [Concomitant]
     Indication: RHEUMATIC DISORDER
     Route: 048
  9. CELECOX [Concomitant]
     Indication: RHEUMATIC DISORDER
  10. LYRICA [Concomitant]
  11. TAKEPRON [Concomitant]

REACTIONS (9)
  - Femur fracture [Unknown]
  - Fall [Unknown]
  - Compression fracture [Recovering/Resolving]
  - Injection site bruising [Unknown]
  - Asthenia [Recovered/Resolved]
  - Vomiting [Recovered/Resolved]
  - Diarrhoea [Unknown]
  - Fall [Unknown]
  - Rheumatoid arthritis [Unknown]
